FAERS Safety Report 9817807 (Version 1)
Quarter: 2013Q4

REPORT INFORMATION
  Report Type: Spontaneous
  Country: US (occurrence: None)
  Receive Date: 20131223
  Receipt Date: 20131223
  Transmission Date: 20140711
  Serious: No
  Sender: FDA-Public Use
  Company Number: 220147

PATIENT
  Age: 57 Year
  Sex: Female

DRUGS (7)
  1. PICATO [Suspect]
     Indication: ACTINIC KERATOSIS
     Dosage: (ONCE), TOPICAL
     Route: 061
  2. LEVOTHYROXINE (LEVOTHYROXINE) [Concomitant]
     Dosage: (ONCE), TOPICAL
  3. TAMOXIFEN [Concomitant]
  4. LISINOPRIL (LISINOPRIL) [Concomitant]
  5. TOPIRAMATE (TOPIRAMATE) [Concomitant]
  6. OTC OSTEO-BI-FLEX (OSTEO BI-FLEX) [Concomitant]
  7. CALCIUM (CALCIUM) [Concomitant]

REACTIONS (3)
  - Application site erythema [None]
  - Application site pain [None]
  - Application site vesicles [None]
